FAERS Safety Report 7642045-4 (Version None)
Quarter: 2011Q3

REPORT INFORMATION
  Report Type: 
  Country: None (occurrence: None)
  Receive Date: 20110722
  Receipt Date: 20110708
  Transmission Date: 20111222
  Serious: Yes (Other)
  Sender: FDA-Public Use
  Company Number: 2011SP021784

PATIENT
  Age: 47 Year
  Sex: Male

DRUGS (1)
  1. INTRON A (INTERFERON ALFA-2B) [Suspect]
     Indication: BEHCET'S SYNDROME
     Dosage: SC
     Route: 058

REACTIONS (6)
  - FURUNCLE [None]
  - SKIN INFECTION [None]
  - DRUG INEFFECTIVE [None]
  - INFECTION SUSCEPTIBILITY INCREASED [None]
  - BEHCET'S SYNDROME [None]
  - CONDITION AGGRAVATED [None]
